FAERS Safety Report 5632683-2 (Version None)
Quarter: 2008Q1

REPORT INFORMATION
  Report Type: 
  Country: None (occurrence: None)
  Receive Date: 20080220
  Receipt Date: 20080208
  Transmission Date: 20080703
  Serious: Yes (Other)
  Sender: FDA-Public Use
  Company Number: US-PFIZER INC-2008014128

PATIENT
  Age: 53 Year
  Sex: Female

DRUGS (5)
  1. CHANTIX [Suspect]
     Indication: SMOKING CESSATION THERAPY
  2. CYMBALTA [Concomitant]
  3. FLEXERIL [Concomitant]
  4. PERCOCET [Concomitant]
  5. TRAZODONE HCL [Concomitant]

REACTIONS (7)
  - ARRHYTHMIA [None]
  - CHEST PAIN [None]
  - DEPRESSION [None]
  - HYPERTENSION [None]
  - NAUSEA [None]
  - STRESS [None]
  - TREATMENT NONCOMPLIANCE [None]
